FAERS Safety Report 11139504 (Version 1)
Quarter: 2015Q2

REPORT INFORMATION
  Report Type: Spontaneous
  Country: GB (occurrence: GB)
  Receive Date: 20150527
  Receipt Date: 20150527
  Transmission Date: 20150821
  Serious: Yes (Hospitalization)
  Sender: FDA-Public Use
  Company Number: GB-PFIZER INC-2015167617

PATIENT
  Age: 68 Year
  Sex: Male
  Weight: 55 kg

DRUGS (8)
  1. CISPLATIN. [Suspect]
     Active Substance: CISPLATIN
     Indication: GASTRIC CANCER
     Dosage: 93 MG, CYCLIC
     Route: 042
     Dates: start: 20091119
  2. CO-DANTHRAMER [Concomitant]
     Dosage: DOSE: 25/200 OD/BD
     Route: 048
  3. SIMVASTATIN. [Concomitant]
     Active Substance: SIMVASTATIN
     Dosage: UNK
     Route: 048
  4. EPIRUBICIN HCL [Suspect]
     Active Substance: EPIRUBICIN HYDROCHLORIDE
     Indication: GASTRIC CANCER
     Dosage: 80 MG, CYCLIC
     Route: 042
     Dates: start: 20091119
  5. XELODA [Suspect]
     Active Substance: CAPECITABINE
     Indication: GASTRIC CANCER
     Dosage: 1000 MG, ONCE DAILY MORNING CYCLIC
     Route: 048
     Dates: start: 20091119, end: 20100106
  6. AVASTIN [Suspect]
     Active Substance: BEVACIZUMAB
     Indication: GASTRIC CANCER
     Dosage: 425 MG, CYCLIC
     Route: 042
  7. LANSOPRAZOLE. [Concomitant]
     Active Substance: LANSOPRAZOLE
     Dosage: UNK
     Route: 048
     Dates: start: 20100104, end: 20100108
  8. ASPIRIN /00002701/ [Concomitant]
     Active Substance: ASPIRIN
     Dosage: UNK
     Route: 048

REACTIONS (6)
  - Diarrhoea [Unknown]
  - Abdominal pain upper [Unknown]
  - Dehydration [Unknown]
  - Dysphagia [Unknown]
  - Vomiting [Not Recovered/Not Resolved]
  - Decreased appetite [Unknown]

NARRATIVE: CASE EVENT DATE: 20100104
